FAERS Safety Report 4455752-1 (Version None)
Quarter: 2004Q3

REPORT INFORMATION
  Report Type: 
  Country: None (occurrence: None)
  Receive Date: 20040920
  Receipt Date: 20040820
  Transmission Date: 20050211
  Serious: Yes (Hospitalization, Other)
  Sender: FDA-Public Use
  Company Number: 2004231181US

PATIENT
  Age: 67 Year
  Sex: Male

DRUGS (13)
  1. CELEBREX [Suspect]
     Dosage: SEE IMAGE
     Dates: start: 20010101
  2. AVANDIA [Suspect]
     Indication: DIABETES MELLITUS NON-INSULIN-DEPENDENT
     Dosage: 8 MG, QD, ORAL
     Route: 048
  3. GLUCOPHAGE [Suspect]
     Indication: DIABETES MELLITUS NON-INSULIN-DEPENDENT
     Dosage: 500 MG, QD, ORAL
     Route: 048
  4. GLUCOVANCE [Concomitant]
  5. ALLOPURINOL [Concomitant]
  6. ZESTORETIC [Concomitant]
  7. PREDNISONE [Concomitant]
  8. LORTAB [Concomitant]
  9. VIAGRA [Concomitant]
  10. ZESTRIL [Concomitant]
  11. ASPIRIN [Concomitant]
  12. AMARYL [Concomitant]
  13. LASIX [Concomitant]

REACTIONS (19)
  - ARTHROPATHY [None]
  - BLISTER [None]
  - CARDIAC DISORDER [None]
  - CARDIAC FAILURE CONGESTIVE [None]
  - CHEST PAIN [None]
  - DIABETIC NEPHROPATHY [None]
  - GASTROOESOPHAGEAL REFLUX DISEASE [None]
  - GOUT [None]
  - HYPERTENSION [None]
  - INTERVERTEBRAL DISC DEGENERATION [None]
  - JOINT INJURY [None]
  - MYOCARDIAL INFARCTION [None]
  - OBESITY [None]
  - OEDEMA PERIPHERAL [None]
  - OSTEOARTHRITIS [None]
  - PITTING OEDEMA [None]
  - REFUSAL OF TREATMENT BY PATIENT [None]
  - RENAL FAILURE [None]
  - RIB FRACTURE [None]
